FAERS Safety Report 6489653-4 (Version None)
Quarter: 2009Q4

REPORT INFORMATION
  Report Type: 
  Country: None (occurrence: None)
  Receive Date: 20091207
  Receipt Date: 20091124
  Transmission Date: 20100525
  Serious: Yes (Other)
  Sender: FDA-Public Use
  Company Number: 2009-196374-NL

PATIENT
  Age: 23 Year
  Sex: Female
  Weight: 83.9154 kg

DRUGS (2)
  1. NUVARING [Suspect]
     Indication: CONTRACEPTION
     Dosage: 1DF;QM
     Dates: start: 20040701, end: 20080131
  2. ALEVE (CAPLET) [Concomitant]

REACTIONS (7)
  - COAGULOPATHY [None]
  - DEEP VEIN THROMBOSIS [None]
  - DEPRESSION [None]
  - EMBOLISM [None]
  - HAEMORRHOIDS [None]
  - HOMANS' SIGN [None]
  - THROMBOSIS [None]
